FAERS Safety Report 13688909 (Version 1)
Quarter: 2017Q2

REPORT INFORMATION
  Report Type: Spontaneous
  Country: US (occurrence: US)
  Receive Date: 20170624
  Receipt Date: 20170624
  Transmission Date: 20170830
  Serious: Yes (Disabling)
  Sender: FDA-Public Use
  Company Number: None

PATIENT
  Age: 2 Year
  Sex: Male
  Weight: 10.35 kg

DRUGS (1)
  1. DIFLUCAN [Suspect]
     Active Substance: FLUCONAZOLE
     Indication: CANDIDA INFECTION
     Dosage: QUANTITY:1 10MG/ML SUSPENSION;?
     Route: 048
     Dates: start: 20150623, end: 20150623

REACTIONS (6)
  - Lethargy [None]
  - Asthenia [None]
  - Crying [None]
  - Sensory disturbance [None]
  - Hypotonia [None]
  - Personality disorder [None]

NARRATIVE: CASE EVENT DATE: 20170623
